FAERS Safety Report 8138034-6 (Version None)
Quarter: 2012Q1

REPORT INFORMATION
  Report Type: 
  Country: None (occurrence: None)
  Receive Date: 20120215
  Receipt Date: 20120209
  Transmission Date: 20120608
  Serious: Yes (Other)
  Sender: FDA-Public Use
  Company Number: US-PFIZER INC-2012036394

PATIENT
  Sex: Female
  Weight: 91.61 kg

DRUGS (6)
  1. XALATAN [Suspect]
     Indication: CATARACT
     Dosage: 1 GTT, 1X/DAY IN EACH EYE
     Route: 047
     Dates: end: 20110801
  2. LATANOPROST [Suspect]
     Indication: CATARACT
     Dosage: 1 GTT, 1X/DAY IN EACH EYE
     Route: 047
     Dates: start: 20110901
  3. ATENOLOL [Concomitant]
     Indication: HYPERTENSION
     Dosage: UNK
  4. OXYCODONE [Concomitant]
     Indication: ARTHRITIS
     Dosage: 5 MG, UNK
  5. OXYCODONE [Concomitant]
     Indication: ARTHROPATHY
  6. COSOPT [Concomitant]
     Indication: GLAUCOMA
     Dosage: UNK

REACTIONS (2)
  - INTRAOCULAR PRESSURE INCREASED [None]
  - DRUG INEFFECTIVE [None]
